FAERS Safety Report 4423435-X (Version None)
Quarter: 2004Q3

REPORT INFORMATION
  Report Type: 
  Country: None (occurrence: None)
  Receive Date: 20040806
  Receipt Date: 20040723
  Transmission Date: 20050211
  Serious: Yes (Life-Threatening, Hospitalization)
  Sender: FDA-Public Use
  Company Number: 2004-0006993

PATIENT
  Age: 50 Year
  Sex: Female
  Weight: 57.3 kg

DRUGS (10)
  1. TENOFOVIR DISOPROXIL FUMARATE(TENOFOVIR DISOPROXIL FUMARATE) [Suspect]
     Indication: HIV INFECTION
     Dosage: 300 MG, 1 IN 1 D, ORAL
     Route: 048
     Dates: start: 20030915, end: 20040402
  2. 3TC (LAMIVUDINE) [Concomitant]
  3. NEVIRAPINE [Concomitant]
  4. DAPSONE [Concomitant]
  5. LIPITOR [Concomitant]
  6. IRON [Concomitant]
  7. PARIET (RABEPRAZOLE SODIUM) [Concomitant]
  8. CALCIUM [Concomitant]
  9. LOSEC(OMEPRAZOLE) [Concomitant]
  10. FERROUS SULFATE TAB [Concomitant]

REACTIONS (11)
  - ABDOMINAL DISCOMFORT [None]
  - ABDOMINAL PAIN [None]
  - ANAEMIA [None]
  - ASCITES [None]
  - DRUG EFFECT DECREASED [None]
  - HEPATITIS A ANTIBODY POSITIVE [None]
  - LIVER DISORDER [None]
  - OESOPHAGEAL VARICES HAEMORRHAGE [None]
  - PORTAL HYPERTENSION [None]
  - PORTAL VEIN THROMBOSIS [None]
  - SPLENOMEGALY [None]
